FAERS Safety Report 13065004 (Version 1)
Quarter: 2016Q4

REPORT INFORMATION
  Report Type: Spontaneous
  Country: US (occurrence: US)
  Receive Date: 20161223
  Receipt Date: 20161223
  Transmission Date: 20170207
  Serious: No
  Sender: FDA-Public Use
  Company Number: None

PATIENT
  Age: 59 Year
  Sex: Female

DRUGS (1)
  1. CAPECITABINE 500MG ACCORD [Suspect]
     Active Substance: CAPECITABINE
     Indication: COLON CANCER
     Dosage: 2000MG Q12H X14D, 7 D OFF PO
     Route: 048
     Dates: start: 20161111, end: 20161207

REACTIONS (1)
  - Haematochezia [None]

NARRATIVE: CASE EVENT DATE: 20161130
